FAERS Safety Report 16423234 (Version 1)
Quarter: 2019Q2

REPORT INFORMATION
  Report Type: Spontaneous
  Country: JP (occurrence: JP)
  Receive Date: 20190612
  Receipt Date: 20190612
  Transmission Date: 20190711
  Serious: Yes (Other)
  Sender: FDA-Public Use
  Company Number: JP-ALLERGAN-1924535US

PATIENT
  Sex: Female

DRUGS (1)
  1. NORETHINDRONE AND ETHINYL ESTRADIOL [Suspect]
     Active Substance: ETHINYL ESTRADIOL\NORETHINDRONE
     Indication: ENDOMETRIOSIS
     Dosage: 1 MG OF NORETHISTERONECOMBINED WITH 0.035 MG OF ETHINYLESTRADIOL FOR 24 MONTHS
     Route: 048

REACTIONS (2)
  - Off label use [Unknown]
  - Ovarian clear cell carcinoma [Recovered/Resolved]
